FAERS Safety Report 9817202 (Version 2)
Quarter: 2014Q1

REPORT INFORMATION
  Report Type: Report from Study
  Country: AR (occurrence: AR)
  Receive Date: 20140114
  Receipt Date: 20140121
  Transmission Date: 20141002
  Serious: Yes (Other)
  Sender: FDA-Public Use
  Company Number: PHHY2013AR148467

PATIENT
  Age: 54 Year
  Sex: Male

DRUGS (2)
  1. RITALIN LA [Suspect]
     Indication: ATTENTION DEFICIT/HYPERACTIVITY DISORDER
     Dosage: 2 DF (OF 30 MG), DAILY
     Route: 048
     Dates: end: 20131209
  2. RITALIN LA [Suspect]
     Dosage: 2 DF (OF 40 MG), DAILY
     Route: 048

REACTIONS (6)
  - Paranoia [Unknown]
  - Panic attack [Unknown]
  - Persecutory delusion [Unknown]
  - Bradyphrenia [Unknown]
  - Feeling abnormal [Not Recovered/Not Resolved]
  - Incorrect dose administered [Unknown]
